FAERS Safety Report 9487322 (Version 1)
Quarter: 2013Q3

REPORT INFORMATION
  Report Type: Spontaneous
  Country: US (occurrence: US)
  Receive Date: 20130829
  Receipt Date: 20130829
  Transmission Date: 20140515
  Serious: Yes (Hospitalization)
  Sender: FDA-Public Use
  Company Number: US-BAXTER-2013BAX033573

PATIENT
  Sex: Male
  Weight: 70.5 kg

DRUGS (5)
  1. FLUCONAZOLE INJECTION, USP [Suspect]
     Indication: BACTERIAL INFECTION
     Route: 042
     Dates: start: 2013
  2. FLUCONAZOLE INJECTION, USP [Suspect]
     Indication: CANDIDA INFECTION
     Route: 042
  3. FLUCONAZOLE INJECTION, USP [Suspect]
     Indication: RESPIRATORY FAILURE
  4. PROTONIX [Suspect]
     Indication: GASTROOESOPHAGEAL REFLUX DISEASE
     Route: 042
     Dates: start: 20130810
  5. OMEPRAZOLE [Suspect]
     Indication: GASTROOESOPHAGEAL REFLUX DISEASE
     Route: 065
     Dates: end: 20130810

REACTIONS (3)
  - Drug ineffective [Unknown]
  - Fungaemia [Unknown]
  - Fungal test positive [Unknown]
